FAERS Safety Report 6591509-3 (Version None)
Quarter: 2010Q1

REPORT INFORMATION
  Report Type: 
  Country: None (occurrence: None)
  Receive Date: 20100219
  Receipt Date: 20100208
  Transmission Date: 20100710
  Serious: Yes (Other)
  Sender: FDA-Public Use
  Company Number: DE-AMGEN-US393917

PATIENT
  Age: 52 Year
  Sex: Female

DRUGS (5)
  1. ENBREL [Suspect]
     Indication: RHEUMATOID ARTHRITIS
     Route: 058
     Dates: start: 20090625, end: 20091201
  2. ENBREL [Suspect]
     Route: 058
     Dates: start: 20091201, end: 20100101
  3. ENBREL [Suspect]
     Route: 058
     Dates: start: 20100101
  4. PREDNISONE TAB [Concomitant]
     Dosage: UNKNOWN
  5. METHOTREXATE [Concomitant]
     Dosage: 25MG (FREQUENCY UNKNOWN)

REACTIONS (8)
  - DRUG EFFECT DECREASED [None]
  - HAEMATOMA [None]
  - MUSCLE TWITCHING [None]
  - NEURALGIA [None]
  - PAIN IN EXTREMITY [None]
  - PRODUCT QUALITY ISSUE [None]
  - RASH PUSTULAR [None]
  - UNDERDOSE [None]
